FAERS Safety Report 8425444-2 (Version None)
Quarter: 2012Q2

REPORT INFORMATION
  Report Type: 
  Country: None (occurrence: None)
  Receive Date: 20120604
  Receipt Date: 20120518
  Transmission Date: 20120825
  Serious: Yes (Death)
  Sender: FDA-Public Use
  Company Number: WAES 1205USA04472

PATIENT
  Age: 55 Year
  Sex: Male

DRUGS (5)
  1. NORVASC [Suspect]
     Indication: HYPERTENSION
     Dosage: 2.5 MG/DAILY, PO
     Route: 048
  2. JANUVIA [Suspect]
     Indication: DIABETES MELLITUS
     Dosage: 50 MG/DAILY, PO
     Route: 048
     Dates: start: 20110304, end: 20120106
  3. TAB METGLUCO (METFORMIN) [Suspect]
     Indication: DIABETES MELLITUS
     Dosage: 500 MG/DAILY, PO
     Route: 048
  4. DIOVAN [Suspect]
     Indication: HYPERTENSION
     Dosage: 160 MG/DAILY, PO
     Route: 048
  5. AMARYL [Suspect]
     Indication: DIABETES MELLITUS
     Dosage: 1 MG/DAILY, PO
     Route: 048

REACTIONS (3)
  - HAEMOGLOBIN DECREASED [None]
  - BLOOD GLUCOSE INCREASED [None]
  - GLYCOSYLATED HAEMOGLOBIN INCREASED [None]
